FAERS Safety Report 17447237 (Version 2)
Quarter: 2020Q1

REPORT INFORMATION
  Report Type: Spontaneous
  Country: FR (occurrence: FR)
  Receive Date: 20200221
  Receipt Date: 20200306
  Transmission Date: 20200409
  Serious: Yes (Other)
  Sender: FDA-Public Use
  Company Number: FR-ALLERGAN-2008023US

PATIENT
  Sex: Female
  Weight: 63 kg

DRUGS (19)
  1. VANCOMYCINE MYLAN [Suspect]
     Active Substance: VANCOMYCIN
     Indication: STREPTOCOCCAL BACTERAEMIA
     Dosage: 2.5 G, QD
     Route: 041
     Dates: start: 20200121, end: 20200130
  2. LEVETIRACETAM MYLAN [Concomitant]
     Active Substance: LEVETIRACETAM
  3. NEFOPAM [Concomitant]
     Active Substance: NEFOPAM
  4. XYDALBA [Suspect]
     Active Substance: DALBAVANCIN HYDROCHLORIDE
     Indication: STREPTOCOCCAL BACTERAEMIA
     Dosage: 1500 MG, QD
     Route: 042
     Dates: start: 20200110, end: 20200120
  5. LINEZOLID. [Suspect]
     Active Substance: LINEZOLID
     Indication: STREPTOCOCCAL BACTERAEMIA
     Route: 048
     Dates: start: 20191226, end: 20191230
  6. DIFFU K [Concomitant]
     Active Substance: POTASSIUM CHLORIDE
  7. DAPTOMYCIN. [Suspect]
     Active Substance: DAPTOMYCIN
     Indication: STREPTOCOCCAL BACTERAEMIA
     Dosage: 700 MG, QD
     Route: 042
     Dates: start: 20200114, end: 20200120
  8. DOLIPRANE [Concomitant]
     Active Substance: ACETAMINOPHEN
  9. BACLOFEN. [Concomitant]
     Active Substance: BACLOFEN
  10. DOXYCYCLINE SANDOZ [Suspect]
     Active Substance: DOXYCYCLINE
     Indication: STREPTOCOCCAL BACTERAEMIA
     Dosage: 200 MG, QD
     Route: 048
     Dates: start: 20200124
  11. MOVICOL [Concomitant]
     Active Substance: POLYETHYLENE GLYCOL 3350\POTASSIUM CHLORIDE\SODIUM BICARBONATE\SODIUM CHLORIDE
  12. LOVENOX [Concomitant]
     Active Substance: ENOXAPARIN SODIUM
  13. XYDALBA [Suspect]
     Active Substance: DALBAVANCIN HYDROCHLORIDE
     Dosage: 1800 MG, QD
     Route: 048
     Dates: start: 20191230, end: 20200114
  14. ZINFORO [Suspect]
     Active Substance: CEFTAROLINE FOSAMIL
     Indication: STREPTOCOCCAL BACTERAEMIA
     Route: 048
     Dates: start: 20191230, end: 20200114
  15. DAPTOMYCIN. [Suspect]
     Active Substance: DAPTOMYCIN
     Dosage: 10 MG, QD
     Route: 024
     Dates: start: 20200110, end: 20200114
  16. CEFOTAXIME [Suspect]
     Active Substance: CEFOTAXIME SODIUM
     Indication: STREPTOCOCCAL BACTERAEMIA
     Dosage: 3000 MG, QD
     Route: 042
     Dates: start: 20191226, end: 20191230
  17. BACTRIM [Concomitant]
     Active Substance: SULFAMETHOXAZOLE\TRIMETHOPRIM
  18. RIFADINE [Suspect]
     Active Substance: RIFAMPIN
     Indication: STREPTOCOCCAL BACTERAEMIA
     Dosage: 1200 MG, QD
     Route: 041
     Dates: start: 20200121
  19. LANSOPRAZOL MYLAN [Concomitant]
     Active Substance: LANSOPRAZOLE

REACTIONS (6)
  - Product use in unapproved indication [Unknown]
  - Myoclonus [Not Recovered/Not Resolved]
  - Metabolic encephalopathy [Not Recovered/Not Resolved]
  - Confusional state [Not Recovered/Not Resolved]
  - Off label use [Unknown]
  - Product use issue [Unknown]

NARRATIVE: CASE EVENT DATE: 20200126
